FAERS Safety Report 5701991-9 (Version None)
Quarter: 2008Q2

REPORT INFORMATION
  Report Type: 
  Country: None (occurrence: None)
  Receive Date: 20080411
  Receipt Date: 20070502
  Transmission Date: 20081010
  Serious: Yes (Hospitalization, Other)
  Sender: FDA-Public Use
  Company Number: US-ABBOTT-07P-163-0364224-00

PATIENT
  Sex: Male
  Weight: 13.62 kg

DRUGS (5)
  1. DEPAKOTE [Suspect]
     Indication: EPILEPSY
     Dates: start: 20070115, end: 20070323
  2. LAMOTRIGINE [Suspect]
     Indication: EPILEPSY
     Route: 048
     Dates: start: 20050423, end: 20070323
  3. TOPIRAMATE [Concomitant]
     Indication: DRUG USE FOR UNKNOWN INDICATION
  4. LEVETIRACETAM [Concomitant]
     Indication: DRUG USE FOR UNKNOWN INDICATION
  5. PHENOBARBITAL TAB [Concomitant]
     Indication: DRUG USE FOR UNKNOWN INDICATION

REACTIONS (1)
  - STEVENS-JOHNSON SYNDROME [None]
